FAERS Safety Report 22270111 (Version 1)
Quarter: 2023Q2

REPORT INFORMATION
  Report Type: Spontaneous
  Country: US (occurrence: None)
  Receive Date: 20230428
  Receipt Date: 20230428
  Transmission Date: 20230722
  Serious: Yes (Other)
  Sender: FDA-Public Use
  Company Number: None

PATIENT
  Age: 65 Year
  Sex: Female

DRUGS (10)
  1. AMBRISENTAN [Suspect]
     Active Substance: AMBRISENTAN
     Indication: Pulmonary arterial hypertension
     Dosage: FREQUENCY : DAILY;?
     Route: 048
     Dates: start: 20220923
  2. TADALAFIL [Concomitant]
     Active Substance: TADALAFIL
  3. LOSARTAN [Concomitant]
  4. ATORVASTATIN [Concomitant]
  5. CLOPIDOGREL [Concomitant]
  6. METOPROLOL [Concomitant]
     Active Substance: METOPROLOL
  7. ALBUTEROL HFA [Concomitant]
  8. FAMOTIDINE [Concomitant]
     Active Substance: FAMOTIDINE
  9. WIXELA INHUB [Concomitant]
     Active Substance: FLUTICASONE PROPIONATE\SALMETEROL XINAFOATE
  10. FUROSEMIDE [Concomitant]

REACTIONS (7)
  - Vomiting [None]
  - Diarrhoea [None]
  - Dehydration [None]
  - Gastroenteritis [None]
  - Dyspnoea [None]
  - Headache [None]
  - Nausea [None]

NARRATIVE: CASE EVENT DATE: 20230411
